FAERS Safety Report 24943925 (Version 1)
Quarter: 2025Q1

REPORT INFORMATION
  Report Type: Spontaneous
  Country: US (occurrence: US)
  Receive Date: 20250207
  Receipt Date: 20250207
  Transmission Date: 20250409
  Serious: No
  Sender: PFIZER
  Company Number: US-PFIZER INC-PV202500013735

PATIENT

DRUGS (4)
  1. DOCETAXEL [Suspect]
     Active Substance: DOCETAXEL
  2. ABIRATERONE [Suspect]
     Active Substance: ABIRATERONE
     Dates: end: 20240301
  3. DENOSUMAB [Concomitant]
     Active Substance: DENOSUMAB
     Dosage: UNK UNK, MONTHLY
  4. CALCIUM [Concomitant]
     Active Substance: CALCIUM
     Dosage: UNK UNK, DAILY

REACTIONS (1)
  - Neoplasm progression [Unknown]
